FAERS Safety Report 6817121-6 (Version None)
Quarter: 2010Q3

REPORT INFORMATION
  Report Type: 
  Country: None (occurrence: None)
  Receive Date: 20100706
  Receipt Date: 20100622
  Transmission Date: 20110219
  Serious: Yes (Other)
  Sender: FDA-Public Use
  Company Number: PHHY2010KR37376

PATIENT
  Age: 33 Year
  Sex: Female
  Weight: 67.7 kg

DRUGS (4)
  1. BROMOCRIPTINE MESYLATE [Suspect]
     Dosage: 7.5 MG/DAY
  2. BROMOCRIPTINE MESYLATE [Suspect]
     Dosage: 15 MG/DAY
  3. OCTREOTIDE ACETATE [Suspect]
     Dosage: 20 MG START IN EACH MONTH
  4. DESMOPRESSIN ACETATE [Concomitant]
     Dosage: TWICE DAILY
     Route: 045

REACTIONS (6)
  - BLOOD FOLLICLE STIMULATING HORMONE ABNORMAL [None]
  - BLOOD PROLACTIN INCREASED [None]
  - CAESAREAN SECTION [None]
  - DRUG EXPOSURE DURING PREGNANCY [None]
  - NORMAL NEWBORN [None]
  - PITUITARY TUMOUR [None]
